FAERS Safety Report 10264219 (Version 1)
Quarter: 2014Q2

REPORT INFORMATION
  Report Type: Spontaneous
  Country: US (occurrence: None)
  Receive Date: 20140624
  Receipt Date: 20140624
  Transmission Date: 20141212
  Serious: Yes (Death, Hospitalization)
  Sender: FDA-Public Use
  Company Number: UCM201406-000103

PATIENT
  Age: 88 Year
  Sex: Female

DRUGS (4)
  1. METRONIDAZOLE [Suspect]
     Indication: CLOSTRIDIUM DIFFICILE COLITIS
  2. VANCOMYCIN (VANCOMYCIN) (VANCOMYCIN) [Concomitant]
  3. AMPICLILLIN (AMPICILLIN) (AMPICILLIN) [Concomitant]
  4. SULBACTAM (SULBACTAM) (SULBACTAM) [Concomitant]

REACTIONS (5)
  - Hypotension [None]
  - Fluid overload [None]
  - Acute respiratory distress syndrome [None]
  - Cardiac failure [None]
  - Acute myocardial infarction [None]
